FAERS Safety Report 8738538 (Version 2)
Quarter: 2012Q4

REPORT INFORMATION
  Report Type: 
  Country: US (occurrence: US)
  Receive Date: 20120823
  Receipt Date: 20120911
  Transmission Date: 20130627
  Serious: Yes (Other)
  Sender: FDA-Public Use
  Company Number: PHEH2012US016291

PATIENT
  Age: 63 Year
  Sex: Female

DRUGS (11)
  1. AFINITOR [Suspect]
     Indication: BREAST CANCER
     Dosage: 10 mg, daily
     Dates: start: 20120705
  2. AFINITOR [Suspect]
     Dosage: 5 mg, daily
     Route: 048
     Dates: end: 20120820
  3. AMOXYCILLIN [Concomitant]
  4. FENTANYL [Concomitant]
  5. ONDANSETRON [Concomitant]
  6. CHLORHEXIDINE [Concomitant]
  7. HYDROCODONE [Concomitant]
  8. OMEPRAZOLE [Concomitant]
  9. OXYCODONE [Concomitant]
  10. FASLODEX [Concomitant]
  11. NIFEDIPINE [Concomitant]

REACTIONS (8)
  - Neuropathy peripheral [Recovering/Resolving]
  - Facial pain [Recovered/Resolved]
  - Ear pain [Recovering/Resolving]
  - Gallbladder disorder [Recovering/Resolving]
  - Vomiting [Recovering/Resolving]
  - Abdominal pain [Recovering/Resolving]
  - Oesophageal pain [Recovering/Resolving]
  - Diarrhoea [Recovering/Resolving]
